FAERS Safety Report 19357784 (Version 1)
Quarter: 2021Q2

REPORT INFORMATION
  Report Type: Spontaneous
  Country: US (occurrence: US)
  Receive Date: 20210531
  Receipt Date: 20210531
  Transmission Date: 20210717
  Serious: No
  Sender: FDA-Public Use
  Company Number: US-PURDUE PHARMA-USA-2021-0243206

PATIENT
  Sex: Male

DRUGS (1)
  1. OXYCODONE HCL TABLETS (RHODES 91?490) [Suspect]
     Active Substance: OXYCODONE HYDROCHLORIDE
     Indication: PAIN
     Dosage: 15 MG, BID
     Route: 048
     Dates: start: 20210409

REACTIONS (11)
  - Dyspnoea [Not Recovered/Not Resolved]
  - Nervousness [Unknown]
  - Inadequate analgesia [Not Recovered/Not Resolved]
  - Tremor [Unknown]
  - Asthenia [Not Recovered/Not Resolved]
  - Sinus disorder [Unknown]
  - Dry mouth [Unknown]
  - Agitation [Not Recovered/Not Resolved]
  - Malaise [Not Recovered/Not Resolved]
  - Dysphagia [Not Recovered/Not Resolved]
  - Throat tightness [Not Recovered/Not Resolved]

NARRATIVE: CASE EVENT DATE: 20210409
